FAERS Safety Report 7679432-4 (Version None)
Quarter: 2011Q3

REPORT INFORMATION
  Report Type: 
  Country: None (occurrence: None)
  Receive Date: 20110812
  Receipt Date: 20110808
  Transmission Date: 20111222
  Serious: Yes (Other)
  Sender: FDA-Public Use
  Company Number: DE-CEPHALON-US022279

PATIENT
  Sex: Male
  Weight: 94 kg

DRUGS (1)
  1. MODAFINIL [Suspect]
     Indication: PARKINSON'S DISEASE
     Route: 048

REACTIONS (1)
  - ATRIAL FIBRILLATION [None]
